FAERS Safety Report 9602947 (Version 1)
Quarter: 2013Q4

REPORT INFORMATION
  Report Type: Spontaneous
  Country: US (occurrence: US)
  Receive Date: 20131004
  Receipt Date: 20131004
  Transmission Date: 20140711
  Serious: No
  Sender: FDA-Public Use
  Company Number: US-AMGEN-USASP2013030207

PATIENT
  Age: 53 Year
  Sex: Female
  Weight: 79.37 kg

DRUGS (6)
  1. ENBREL [Suspect]
     Indication: PRODUCT USED FOR UNKNOWN INDICATION
     Dosage: 50 MG, 2 TIMES/WK
     Route: 058
  2. NOVOLOG [Concomitant]
     Dosage: 100 ML, UNK
  3. LEVOTHYROXIN [Concomitant]
     Dosage: 88 MUG, UNK
  4. LISINOPRIL [Concomitant]
     Dosage: 5 MG, UNK
  5. MULTIVITAMINS, PLAIN [Concomitant]
     Dosage: UNK
  6. GLUCO + CHONDROITIN [Concomitant]
     Dosage: UNK

REACTIONS (3)
  - Injection site erythema [Unknown]
  - Injection site pruritus [Unknown]
  - Infection [Unknown]
